APPROVED DRUG PRODUCT: CHILDREN'S MOTRIN COLD
Active Ingredient: IBUPROFEN; PSEUDOEPHEDRINE HYDROCHLORIDE
Strength: 100MG/5ML;15MG/5ML
Dosage Form/Route: SUSPENSION;ORAL
Application: N021128 | Product #001
Applicant: KENVUE BRANDS LLC
Approved: Aug 1, 2000 | RLD: Yes | RS: Yes | Type: OTC